FAERS Safety Report 6154924-8 (Version None)
Quarter: 2009Q2

REPORT INFORMATION
  Report Type: 
  Country: None (occurrence: None)
  Receive Date: 20090414
  Receipt Date: 20090403
  Transmission Date: 20091009
  Serious: Yes (Disabling, Other)
  Sender: FDA-Public Use
  Company Number: US-PFIZER INC-2006005285

PATIENT
  Sex: Male
  Weight: 87.982 kg

DRUGS (8)
  1. NEURONTIN [Suspect]
     Indication: NEUROPATHY PERIPHERAL
     Dosage: UNK
     Route: 065
     Dates: start: 20030101, end: 20060101
  2. CELEBREX [Suspect]
     Indication: NEUROPATHY PERIPHERAL
     Dates: start: 20030101, end: 20060101
  3. GLUCOTROL XL [Suspect]
     Route: 065
     Dates: start: 20040101
  4. OXYCONTIN [Concomitant]
     Route: 065
  5. PERCOCET [Concomitant]
     Route: 065
  6. ALL OTHER THERAPEUTIC PRODUCTS [Concomitant]
  7. ALL OTHER THERAPEUTIC PRODUCTS [Concomitant]
  8. ACETYLSALICYLIC ACID [Concomitant]

REACTIONS (6)
  - ABASIA [None]
  - DISABILITY [None]
  - FALL [None]
  - GAIT DISTURBANCE [None]
  - NEUROPATHY PERIPHERAL [None]
  - PAIN [None]
